FAERS Safety Report 5339070-5 (Version None)
Quarter: 2007Q2

REPORT INFORMATION
  Report Type: 
  Country: None (occurrence: None)
  Receive Date: 20070530
  Receipt Date: 20070518
  Transmission Date: 20071010
  Serious: Yes (Other)
  Sender: FDA-Public Use
  Company Number: US-PFIZER INC-2007040636

PATIENT
  Sex: Female
  Weight: 108.4 kg

DRUGS (7)
  1. LIPITOR [Suspect]
     Indication: BLOOD CHOLESTEROL INCREASED
  2. METHADONE HCL [Concomitant]
     Indication: PAIN
  3. SOMA [Concomitant]
  4. THYROID TAB [Concomitant]
     Indication: THYROID DISORDER
  5. VITAMIN B COMPLEX CAP [Concomitant]
     Indication: ASTHENIA
  6. OMEGA 3 [Concomitant]
  7. VITAMIN CAP [Concomitant]

REACTIONS (5)
  - BLOOD CHOLESTEROL [None]
  - BLOOD CHOLESTEROL INCREASED [None]
  - HYPOTHYROIDISM [None]
  - STOMACH DISCOMFORT [None]
  - WEIGHT INCREASED [None]
